FAERS Safety Report 14373519 (Version 2)
Quarter: 2019Q1

REPORT INFORMATION
  Report Type: Spontaneous
  Country: US (occurrence: US)
  Receive Date: 20180110
  Receipt Date: 20190327
  Transmission Date: 20190417
  Serious: Yes (Death, Hospitalization, Other)
  Sender: FDA-Public Use
  Company Number: US-JAZZ-2017-US-017564

PATIENT
  Age: 62 Year
  Sex: Male

DRUGS (2)
  1. CLOZAPINE. [Suspect]
     Active Substance: CLOZAPINE
     Indication: SCHIZOPHRENIA
     Dosage: 12.5 MG, QD
     Route: 048
  2. CLOZAPINE. [Suspect]
     Active Substance: CLOZAPINE
     Dosage: 75 MG, QD
     Route: 048

REACTIONS (21)
  - Abdominal pain [Unknown]
  - Influenza like illness [Unknown]
  - Myocardial ischaemia [Unknown]
  - Constipation [Unknown]
  - Tachypnoea [Unknown]
  - Cardiac failure congestive [Fatal]
  - Fibrin D dimer increased [Unknown]
  - Troponin increased [Unknown]
  - Sepsis [Fatal]
  - Myocardial necrosis marker increased [Unknown]
  - Metabolic acidosis [Unknown]
  - Tachycardia [Unknown]
  - Septic shock [Fatal]
  - Pulmonary oedema [Unknown]
  - Hypophagia [Unknown]
  - Orthostatic hypotension [Unknown]
  - Circulatory collapse [Fatal]
  - Blood gases abnormal [Unknown]
  - Leukocytosis [Unknown]
  - Discomfort [Unknown]
  - Salivary hypersecretion [Unknown]
